FAERS Safety Report 5355042-9 (Version None)
Quarter: 2007Q2

REPORT INFORMATION
  Report Type: 
  Country: None (occurrence: None)
  Receive Date: 20070521
  Receipt Date: 20070207
  Transmission Date: 20071010
  Serious: No
  Sender: FDA-Public Use
  Company Number: WAES 0612USA00395

PATIENT
  Age: 45 Year
  Sex: Male
  Weight: 146.9654 kg

DRUGS (11)
  1. JANUVIA [Suspect]
     Indication: DIABETES MELLITUS NON-INSULIN-DEPENDENT
     Dosage: SEE IMAGE
     Route: 048
     Dates: end: 20070130
  2. JANUVIA [Suspect]
     Indication: GLYCOSYLATED HAEMOGLOBIN INCREASED
     Dosage: SEE IMAGE
     Route: 048
     Dates: end: 20070130
  3. JANUVIA [Suspect]
     Indication: DIABETES MELLITUS NON-INSULIN-DEPENDENT
     Dosage: SEE IMAGE
     Route: 048
     Dates: start: 20061001
  4. JANUVIA [Suspect]
     Indication: GLYCOSYLATED HAEMOGLOBIN INCREASED
     Dosage: SEE IMAGE
     Route: 048
     Dates: start: 20061001
  5. ACTOS [Concomitant]
  6. HYZAAR [Concomitant]
  7. LANTUS [Concomitant]
  8. LOTREL [Concomitant]
  9. ZOCOR [Concomitant]
  10. ASPIRIN [Concomitant]
  11. METFORMIN HCL [Concomitant]

REACTIONS (2)
  - DRY MOUTH [None]
  - INFLUENZA LIKE ILLNESS [None]
